FAERS Safety Report 19477982 (Version 1)
Quarter: 2021Q2

REPORT INFORMATION
  Report Type: Spontaneous
  Country: DK (occurrence: DK)
  Receive Date: 20210630
  Receipt Date: 20210630
  Transmission Date: 20210717
  Serious: Yes (Life-Threatening, Hospitalization, Disabling)
  Sender: FDA-Public Use
  Company Number: DK-ASTRAZENECA-2021A565780

PATIENT
  Age: 81 Year
  Sex: Male
  Weight: 64 kg

DRUGS (10)
  1. CLOPIDOGREL [Concomitant]
     Active Substance: CLOPIDOGREL BISULFATE
     Indication: THROMBOSIS PROPHYLAXIS
     Route: 048
     Dates: start: 20150924
  2. FORXIGA [Suspect]
     Active Substance: DAPAGLIFLOZIN
     Indication: TYPE 2 DIABETES MELLITUS
     Route: 048
     Dates: start: 20181213, end: 20210510
  3. METFORMIN [Interacting]
     Active Substance: METFORMIN HYDROCHLORIDE
     Indication: TYPE 2 DIABETES MELLITUS
     Route: 048
     Dates: start: 20170308, end: 20210510
  4. DUTASTERIDE TEVA [Concomitant]
     Indication: DYSURIA
     Route: 048
     Dates: start: 20131209
  5. OZEMPIC [Concomitant]
     Active Substance: SEMAGLUTIDE
     Indication: TYPE 2 DIABETES MELLITUS
     Route: 058
     Dates: start: 20190627, end: 20200812
  6. CITALOPRAM [Concomitant]
     Active Substance: CITALOPRAM HYDROBROMIDE
     Indication: DEPRESSION
     Route: 048
     Dates: start: 20141218
  7. PANODIL [Concomitant]
     Active Substance: ACETAMINOPHEN
     Indication: TRISMUS
     Route: 048
     Dates: start: 20180601
  8. VIBEDEN [Concomitant]
     Active Substance: HYDROXOCOBALAMIN
     Indication: VITAMIN B12 DEFICIENCY
     Dosage: DOSAGE: INJECTION AT GENERAL PRACTITIONER, STRENGTH: 1 MG/ML
     Route: 030
     Dates: start: 20170119
  9. ATORVASTATIN TEVA [Concomitant]
     Active Substance: ATORVASTATIN
     Indication: HYPERCHOLESTEROLAEMIA
     Route: 048
     Dates: start: 20150925
  10. ALFUZOSIN SANDOZ [Concomitant]
     Active Substance: ALFUZOSIN
     Indication: DYSURIA
     Route: 048
     Dates: start: 20141121, end: 20200204

REACTIONS (4)
  - Diarrhoea [Recovered/Resolved]
  - Weight decreased [Recovered/Resolved]
  - Drug interaction [Recovered/Resolved]
  - Vomiting [Recovered/Resolved]

NARRATIVE: CASE EVENT DATE: 20190702
